FAERS Safety Report 19096460 (Version 4)
Quarter: 2023Q2

REPORT INFORMATION
  Report Type: Spontaneous
  Country: IN (occurrence: IN)
  Receive Date: 20210406
  Receipt Date: 20230608
  Transmission Date: 20230721
  Serious: Yes (Other)
  Sender: FDA-Public Use
  Company Number: IN-PFIZER INC-2018492835

PATIENT
  Age: 69 Year
  Sex: Female

DRUGS (3)
  1. PALBOCICLIB [Suspect]
     Active Substance: PALBOCICLIB
     Indication: Breast cancer metastatic
     Dosage: 125 MG, 1X/DAY
     Route: 048
     Dates: start: 20180517, end: 20180517
  2. PALBOCICLIB [Suspect]
     Active Substance: PALBOCICLIB
     Dosage: 100 MG, ONCE DAILY FOR 21 DAYS
     Route: 048
     Dates: start: 20180518
  3. LETROZOLE [Concomitant]
     Active Substance: LETROZOLE
     Dosage: 2.5 MG, 1X/DAY

REACTIONS (13)
  - Cataract [Unknown]
  - Neutrophil count decreased [Unknown]
  - Nausea [Unknown]
  - Vomiting [Unknown]
  - Mouth ulceration [Unknown]
  - Stomatitis [Unknown]
  - Oral disorder [Unknown]
  - Pyrexia [Recovered/Resolved]
  - Tongue disorder [Unknown]
  - Malaise [Unknown]
  - Asthenia [Unknown]
  - Decreased immune responsiveness [Recovering/Resolving]
  - White blood cell count increased [Unknown]

NARRATIVE: CASE EVENT DATE: 20180101
